FAERS Safety Report 10515379 (Version 2)
Quarter: 2015Q1

REPORT INFORMATION
  Report Type: Spontaneous
  Country: US (occurrence: None)
  Receive Date: 20141009
  Receipt Date: 20150327
  Transmission Date: 20150720
  Serious: Yes (Death)
  Sender: FDA-Public Use
  Company Number: 201410013

PATIENT
  Age: 62 Year
  Sex: Male
  Weight: 87.09 kg

DRUGS (7)
  1. ASPIRIN (ACETYLSALICYLIC ACID) [Concomitant]
     Active Substance: ASPIRIN
  2. SIMVASTATIN. [Concomitant]
     Active Substance: SIMVASTATIN
  3. TESTIM [Suspect]
     Active Substance: TESTOSTERONE
     Indication: HYPOGONADISM
     Dosage: 1 IN 1 D
     Route: 062
     Dates: start: 20120208
  4. METOPROLOL TARTRATE. [Concomitant]
     Active Substance: METOPROLOL TARTRATE
  5. PLAVIX (CLOPIDOGREL BISULFATE) [Concomitant]
  6. ENALAPRIL MALEATE. [Concomitant]
     Active Substance: ENALAPRIL MALEATE
  7. TESTIM [Suspect]
     Active Substance: TESTOSTERONE
     Dosage: 1 IN 1 D
     Route: 062
     Dates: start: 20120208

REACTIONS (5)
  - Economic problem [None]
  - Anxiety [None]
  - Unevaluable event [None]
  - Pain [None]
  - Myocardial infarction [None]

NARRATIVE: CASE EVENT DATE: 20121007
